FAERS Safety Report 19909037 (Version 1)
Quarter: 2021Q4

REPORT INFORMATION
  Report Type: Spontaneous
  Country: US (occurrence: US)
  Receive Date: 20211001
  Receipt Date: 20211001
  Transmission Date: 20220303
  Serious: No
  Sender: FDA-Public Use
  Company Number: US-AMARIN PHARMA, INC.-2020AMR000830

PATIENT
  Age: 50 Year
  Sex: Male

DRUGS (3)
  1. VASCEPA [Suspect]
     Active Substance: ICOSAPENT ETHYL
     Indication: Blood triglycerides increased
     Route: 048
  2. VASCEPA [Suspect]
     Active Substance: ICOSAPENT ETHYL
     Route: 048
     Dates: start: 2018, end: 2018
  3. REPATHA [Concomitant]
     Active Substance: EVOLOCUMAB
     Indication: Blood cholesterol increased
     Dates: start: 2018

REACTIONS (1)
  - Blood triglycerides increased [Recovered/Resolved]
